FAERS Safety Report 10607725 (Version 2)
Quarter: 2014Q4

REPORT INFORMATION
  Report Type: Spontaneous
  Country: FR (occurrence: FR)
  Receive Date: 20141125
  Receipt Date: 20141218
  Transmission Date: 20150529
  Serious: Yes (Other)
  Sender: FDA-Public Use
  Company Number: FR-009507513-1411FRA008586

PATIENT
  Age: 68 Year
  Sex: Male

DRUGS (8)
  1. PRISTINAMYCIN [Suspect]
     Active Substance: PRISTINAMYCIN
     Dosage: 1 G, BID
     Route: 048
     Dates: start: 20140922, end: 20140927
  2. TRIFLUCAN [Suspect]
     Active Substance: FLUCONAZOLE
     Dosage: 500 MG, QID
     Route: 048
     Dates: start: 20140908, end: 20140911
  3. IMIPENEM AND CILASTATIN [Suspect]
     Active Substance: CILASTATIN SODIUM\IMIPENEM
     Dosage: 1 G, Q6H
     Route: 042
     Dates: start: 20140608, end: 20140915
  4. ZELITREX [Suspect]
     Active Substance: VALACYCLOVIR HYDROCHLORIDE
     Dosage: 500 MG, BID
     Route: 048
     Dates: start: 20140912
  5. TAVANIC [Suspect]
     Active Substance: LEVOFLOXACIN
     Dosage: 500 MG, QD
     Route: 042
     Dates: start: 20140911, end: 20140912
  6. ACETAMINOPHEN. [Suspect]
     Active Substance: ACETAMINOPHEN
     Dosage: 1 G, Q6H
     Route: 048
     Dates: start: 20140911
  7. VFEND [Suspect]
     Active Substance: VORICONAZOLE
     Dosage: 200 MG, BID
     Route: 048
     Dates: start: 20140911, end: 20140912
  8. ZARZIO [Suspect]
     Active Substance: FILGRASTIM
     Dosage: 30 MIU, QD
     Route: 058
     Dates: start: 20140908, end: 20140918

REACTIONS (1)
  - Hepatocellular injury [Recovering/Resolving]

NARRATIVE: CASE EVENT DATE: 20140927
